FAERS Safety Report 9682520 (Version 1)
Quarter: 2013Q4

REPORT INFORMATION
  Report Type: Other
  Country: JP (occurrence: JP)
  Receive Date: 20131112
  Receipt Date: 20131112
  Transmission Date: 20140711
  Serious: Yes (Life-Threatening)
  Sender: FDA-Public Use
  Company Number: JP-BRISTOL-MYERS SQUIBB COMPANY-19793181

PATIENT
  Age: 15 Year
  Sex: Female

DRUGS (4)
  1. ETOPOSIDE [Suspect]
     Indication: ALVEOLAR RHABDOMYOSARCOMA
     Route: 042
  2. IFOSFAMIDE [Suspect]
     Indication: ALVEOLAR RHABDOMYOSARCOMA
     Route: 042
  3. DACTINOMYCIN [Suspect]
     Indication: ALVEOLAR RHABDOMYOSARCOMA
     Route: 042
  4. VINCRISTINE [Suspect]
     Indication: ALVEOLAR RHABDOMYOSARCOMA
     Dosage: FREQUENCY:D1 AND D8
     Route: 042

REACTIONS (1)
  - Rhabdomyolysis [Recovering/Resolving]
